FAERS Safety Report 9398717 (Version 2)
Quarter: 2013Q3

REPORT INFORMATION
  Report Type: Spontaneous
  Country: GB (occurrence: GB)
  Receive Date: 20130712
  Receipt Date: 20130717
  Transmission Date: 20140515
  Serious: Yes (Other)
  Sender: FDA-Public Use
  Company Number: GB-009507513-1307GBR002723

PATIENT
  Age: 39 Year
  Sex: Female

DRUGS (4)
  1. ETONOGESTREL [Suspect]
     Indication: CONTRACEPTION
     Dosage: 68 MG, UNK
     Route: 059
     Dates: start: 20101031, end: 20130525
  2. FLUCONAZOLE [Concomitant]
  3. IBUPROFEN [Concomitant]
  4. NITROFURANTOIN [Concomitant]

REACTIONS (2)
  - Abortion spontaneous [Unknown]
  - Pregnancy with implant contraceptive [Recovered/Resolved]
